FAERS Safety Report 7689082-1 (Version None)
Quarter: 2011Q3

REPORT INFORMATION
  Report Type: 
  Country: None (occurrence: None)
  Receive Date: 20110817
  Receipt Date: 20110809
  Transmission Date: 20111222
  Serious: Yes (Hospitalization)
  Sender: FDA-Public Use
  Company Number: JP-MERCK-1108USA01601

PATIENT
  Age: 9 Year
  Sex: Male
  Weight: 24 kg

DRUGS (7)
  1. TANATRIL [Concomitant]
     Route: 048
  2. CALCIUM CARBONATE [Concomitant]
     Route: 048
  3. KALIMATE [Concomitant]
     Route: 048
  4. COZAAR [Suspect]
     Indication: RENAL DISORDER
     Route: 048
     Dates: start: 20060101, end: 20110325
  5. COZAAR [Suspect]
     Route: 048
     Dates: start: 20110520, end: 20110629
  6. KREMEZIN [Concomitant]
     Route: 048
  7. SODIUM BICARBONATE [Concomitant]
     Route: 065

REACTIONS (3)
  - OFF LABEL USE [None]
  - BLOOD POTASSIUM INCREASED [None]
  - BLOOD CREATINE PHOSPHOKINASE INCREASED [None]
